FAERS Safety Report 10557281 (Version 2)
Quarter: 2014Q4

REPORT INFORMATION
  Report Type: Spontaneous
  Country: US (occurrence: None)
  Receive Date: 20141029
  Receipt Date: 20141121
  Transmission Date: 20150529
  Serious: Yes (Disabling)
  Sender: FDA-Public Use
  Company Number: LH201400341

PATIENT
  Age: 31 Year
  Sex: Female

DRUGS (5)
  1. PEPCID AC (FAMOTIDINE) [Concomitant]
  2. MAKENA [Suspect]
     Active Substance: HYDROXYPROGESTERONE CAPROATE
     Indication: PREMATURE DELIVERY
     Route: 030
     Dates: start: 20140821
  3. CLARITIN /00413701/ (GLICILAZIDE) [Concomitant]
  4. SINGULAIR (MONTELUKAST SODIUM) [Concomitant]
  5. PREFERA OB (BIOTIN, CALCIUM PANTOTHENATE, COLECALCIFEROL, COPPER SULFATE, CYANOCOBALAMIN, FOLIC ACID, NICOTINAMIDE, POLYSACCHARIDE-IRON COMPLEX, POTASSIUM IODIDE, PYRIDOXINE HYDROCHLORIDE, RIBOFLAVIN, SODIUM SELENATE, THIAMINE MONONITRATE, TOCOPHERYL ACID SUCCINATE, ZINC OXIDE [Concomitant]

REACTIONS (8)
  - Injection site swelling [None]
  - Injection site mass [None]
  - Injection site urticaria [None]
  - Injection site nodule [None]
  - Exposure during pregnancy [None]
  - Headache [None]
  - Injection site pruritus [None]
  - Migraine [None]

NARRATIVE: CASE EVENT DATE: 2014
